FAERS Safety Report 6814367-8 (Version None)
Quarter: 2010Q2

REPORT INFORMATION
  Report Type: 
  Country: None (occurrence: None)
  Receive Date: 20100629
  Receipt Date: 20100629
  Transmission Date: 20101027
  Serious: No
  Sender: FDA-Public Use
  Company Number: None

PATIENT

DRUGS (1)
  1. ELAVIL [Suspect]

REACTIONS (8)
  - CHILLS [None]
  - DRUG WITHDRAWAL SYNDROME [None]
  - NAUSEA [None]
  - OCCUPATIONAL PROBLEM ENVIRONMENTAL [None]
  - PAIN [None]
  - PYREXIA [None]
  - SKIN DISCOLOURATION [None]
  - VASOSPASM [None]
